FAERS Safety Report 5793328-4 (Version None)
Quarter: 2008Q2

REPORT INFORMATION
  Report Type: 
  Country: None (occurrence: None)
  Receive Date: 20080627
  Receipt Date: 20080620
  Transmission Date: 20081010
  Serious: Yes (Other)
  Sender: FDA-Public Use
  Company Number: A0734149A

PATIENT
  Age: 70 Year
  Sex: Male
  Weight: 72.7 kg

DRUGS (9)
  1. ARIXTRA [Suspect]
     Dosage: 7.5MG PER DAY
     Route: 058
     Dates: start: 20080609
  2. WARFARIN SODIUM [Concomitant]
  3. ENALAPRIL MALEATE [Concomitant]
  4. AMLODIPINE [Concomitant]
  5. ALLOPURINOL [Concomitant]
  6. LIPITOR [Concomitant]
  7. CYMBALTA [Concomitant]
  8. VIT B COMPLEX [Concomitant]
  9. SELENIUM [Concomitant]

REACTIONS (5)
  - DIARRHOEA [None]
  - DIZZINESS [None]
  - HAEMORRHAGE URINARY TRACT [None]
  - HEART RATE ABNORMAL [None]
  - RECTAL HAEMORRHAGE [None]
